FAERS Safety Report 13833059 (Version 1)
Quarter: 2017Q3

REPORT INFORMATION
  Report Type: Spontaneous
  Country: US (occurrence: US)
  Receive Date: 20170803
  Receipt Date: 20170803
  Transmission Date: 20171127
  Serious: No
  Sender: FDA-Public Use
  Company Number: US-PFIZER INC-2017333933

PATIENT
  Sex: Female

DRUGS (2)
  1. XELJANZ XR [Concomitant]
     Active Substance: TOFACITINIB CITRATE
  2. GABAPENTIN. [Suspect]
     Active Substance: GABAPENTIN
     Dosage: 300 MG, UNK

REACTIONS (6)
  - Arthralgia [Unknown]
  - Sleep disorder [Unknown]
  - Joint swelling [Unknown]
  - Joint stiffness [Unknown]
  - Synovitis [Unknown]
  - Arthritis [Recovering/Resolving]
